FAERS Safety Report 11881982 (Version 2)
Quarter: 2016Q1

REPORT INFORMATION
  Report Type: Spontaneous
  Country: IT (occurrence: IT)
  Receive Date: 20151231
  Receipt Date: 20160105
  Transmission Date: 20160526
  Serious: Yes (Other)
  Sender: FDA-Public Use
  Company Number: PHHY2015IT169935

PATIENT
  Age: 2 Month
  Sex: Female

DRUGS (2)
  1. MOMENT [Suspect]
     Active Substance: IBUPROFEN
     Indication: PREMENSTRUAL SYNDROME
     Route: 048
     Dates: start: 20151031, end: 20151102
  2. PARACETAMOL [Suspect]
     Active Substance: ACETAMINOPHEN
     Indication: DYSMENORRHOEA
     Route: 048

REACTIONS (3)
  - Urticaria [Unknown]
  - Pruritus [Unknown]
  - Rash [Unknown]

NARRATIVE: CASE EVENT DATE: 20151106
